FAERS Safety Report 6084539-1 (Version None)
Quarter: 2009Q1

REPORT INFORMATION
  Report Type: 
  Country: None (occurrence: None)
  Receive Date: 20090217
  Receipt Date: 20090206
  Transmission Date: 20090719
  Serious: Yes (Other)
  Sender: FDA-Public Use
  Company Number: 2009AL000808

PATIENT
  Sex: Female

DRUGS (2)
  1. CITALOPRAM HYDROBROMIDE [Suspect]
  2. PAROXETINE HCL [Concomitant]

REACTIONS (10)
  - ABORTION INDUCED [None]
  - APATHY [None]
  - APPETITE DISORDER [None]
  - DRUG EXPOSURE DURING PREGNANCY [None]
  - EMOTIONAL DISTRESS [None]
  - INTENTIONAL OVERDOSE [None]
  - IRRITABILITY [None]
  - SUICIDE ATTEMPT [None]
  - TEARFULNESS [None]
  - WEIGHT FLUCTUATION [None]
